FAERS Safety Report 7280604-1 (Version None)
Quarter: 2011Q1

REPORT INFORMATION
  Report Type: 
  Country: None (occurrence: None)
  Receive Date: 20110208
  Receipt Date: 20110201
  Transmission Date: 20110831
  Serious: Yes (Other)
  Sender: FDA-Public Use
  Company Number: CA-JNJFOC-20110201381

PATIENT
  Sex: Female
  Weight: 100 kg

DRUGS (5)
  1. VENTOLIN [Concomitant]
     Route: 055
  2. REMICADE [Suspect]
     Indication: UVEITIS
     Route: 042
  3. REMICADE [Suspect]
     Route: 042
  4. REMICADE [Suspect]
     Route: 042
  5. ADVAIR [Concomitant]
     Route: 055

REACTIONS (2)
  - ASTHMA [None]
  - PYREXIA [None]
